FAERS Safety Report 5066703-3 (Version None)
Quarter: 2006Q3

REPORT INFORMATION
  Report Type: 
  Country: None (occurrence: None)
  Receive Date: 20060801
  Receipt Date: 20060719
  Transmission Date: 20061208
  Serious: Yes (Congenital Anomaly)
  Sender: FDA-Public Use
  Company Number: DE-GLAXOSMITHKLINE-B0432399A

PATIENT

DRUGS (5)
  1. DIGOXIN [Suspect]
  2. PHENPROCOUMON [Suspect]
     Indication: HEART VALVE REPLACEMENT
  3. HEPARIN [Suspect]
  4. CAPTOPRIL [Suspect]
  5. FUROSEMIDE [Suspect]

REACTIONS (9)
  - CEREBRAL HAEMORRHAGE NEONATAL [None]
  - CONGENITAL ANOMALY [None]
  - CONGENITAL HEARING DISORDER [None]
  - CONGENITAL NOSE MALFORMATION [None]
  - DRUG EXPOSURE DURING PREGNANCY [None]
  - FINGER HYPOPLASIA [None]
  - FOETAL GROWTH RETARDATION [None]
  - MUSCLE DISORDER [None]
  - PREMATURE BABY [None]
